FAERS Safety Report 18160123 (Version 2)
Quarter: 2021Q1

REPORT INFORMATION
  Report Type: Report from Study
  Country: US (occurrence: US)
  Receive Date: 20200817
  Receipt Date: 20210330
  Transmission Date: 20210419
  Serious: No
  Sender: FDA-Public Use
  Company Number: NVSC2020US226967

PATIENT
  Sex: Female

DRUGS (1)
  1. ENTRESTO [Suspect]
     Active Substance: SACUBITRIL\VALSARTAN
     Indication: CARDIAC FAILURE
     Dosage: 24.26 MG, BID
     Route: 048
     Dates: start: 20200730

REACTIONS (4)
  - Muscle spasms [Unknown]
  - Sleep disorder [Unknown]
  - Mood swings [Unknown]
  - Hypotension [Unknown]
